FAERS Safety Report 19885199 (Version 1)
Quarter: 2021Q3

REPORT INFORMATION
  Report Type: Spontaneous
  Country: US (occurrence: US)
  Receive Date: 20210923
  Receipt Date: 20210923
  Transmission Date: 20211014
  Serious: No
  Sender: FDA-Public Use
  Company Number: None

PATIENT
  Age: 71 Year
  Sex: Male

DRUGS (1)
  1. VALSARTAN (VALSARTAN 160MG CAP) [Suspect]
     Active Substance: VALSARTAN
     Indication: HYPERTENSION
     Dates: start: 20210213, end: 20210216

REACTIONS (1)
  - Angioedema [None]

NARRATIVE: CASE EVENT DATE: 20210608
